FAERS Safety Report 9377499 (Version 1)
Quarter: 2013Q3

REPORT INFORMATION
  Report Type: Spontaneous
  Country: US (occurrence: US)
  Receive Date: 20130701
  Receipt Date: 20130701
  Transmission Date: 20140515
  Serious: Yes (Other)
  Sender: FDA-Public Use
  Company Number: US-ASTRAZENECA-2013SE48692

PATIENT
  Sex: Male

DRUGS (1)
  1. CRESTOR [Suspect]
     Route: 048
     Dates: start: 2004

REACTIONS (4)
  - Carotid artery occlusion [Unknown]
  - Collateral circulation [Unknown]
  - Cerebral ischaemia [Unknown]
  - Discomfort [Unknown]
